FAERS Safety Report 13790317 (Version 1)
Quarter: 2017Q3

REPORT INFORMATION
  Report Type: Report from Study
  Country: US (occurrence: US)
  Receive Date: 20170725
  Receipt Date: 20170725
  Transmission Date: 20171127
  Serious: Yes (Death)
  Sender: FDA-Public Use
  Company Number: US-BIOGEN-2017BI00433999

PATIENT
  Age: 37 Year
  Sex: Female
  Weight: 120 kg

DRUGS (1)
  1. TECFIDERA [Suspect]
     Active Substance: DIMETHYL FUMARATE
     Indication: MULTIPLE SCLEROSIS
     Dosage: MAINTENANCE DOSE
     Route: 048
     Dates: start: 20110320

REACTIONS (1)
  - Death [Fatal]

NARRATIVE: CASE EVENT DATE: 20170711
